FAERS Safety Report 11311437 (Version 4)
Quarter: 2015Q3

REPORT INFORMATION
  Report Type: Spontaneous
  Country: US (occurrence: US)
  Receive Date: 20150727
  Receipt Date: 20150811
  Transmission Date: 20151125
  Serious: No
  Sender: FDA-Public Use
  Company Number: US-AMGEN-USASL2015073449

PATIENT
  Age: 42 Year
  Sex: Female
  Weight: 65.76 kg

DRUGS (2)
  1. ENBREL [Suspect]
     Active Substance: ETANERCEPT
     Indication: RHEUMATOID ARTHRITIS
     Dosage: 50 MG, WEEKLY
     Route: 058
  2. PREDNISONE. [Concomitant]
     Active Substance: PREDNISONE
     Dosage: UNK

REACTIONS (12)
  - Rubber sensitivity [Unknown]
  - Injection site pain [Unknown]
  - Urticaria [Unknown]
  - Injection site reaction [Unknown]
  - Injection site nodule [Unknown]
  - Injection site swelling [Unknown]
  - Animal bite [Unknown]
  - Injection site pruritus [Unknown]
  - Injection site erythema [Unknown]
  - Contusion [Unknown]
  - Injection site induration [Unknown]
  - Injection site urticaria [Unknown]

NARRATIVE: CASE EVENT DATE: 2015
